FAERS Safety Report 8564991-X (Version None)
Quarter: 2012Q3

REPORT INFORMATION
  Report Type: 
  Country: None (occurrence: None)
  Receive Date: 20120724
  Receipt Date: 20120716
  Transmission Date: 20120928
  Serious: Yes (Other)
  Sender: FDA-Public Use
  Company Number: ACO_31136_2012

PATIENT
  Age: 67 Year
  Sex: Female
  Weight: 74.8 kg

DRUGS (9)
  1. GLYBURIDE [Concomitant]
  2. LOPRESSOR [Concomitant]
  3. GLUCOPHAGE [Concomitant]
  4. PREVACID [Concomitant]
  5. POTASSIUM (POTASSIUM) [Concomitant]
  6. AMPYRA [Suspect]
     Indication: MULTIPLE SCLEROSIS
     Dosage: 10 MG, QD, ORAL, 10 MG, QOD, ORAL
     Route: 048
     Dates: end: 20120701
  7. AMPYRA [Suspect]
     Indication: MULTIPLE SCLEROSIS
     Dosage: 10 MG, QD, ORAL, 10 MG, QOD, ORAL
     Route: 048
     Dates: start: 20120701
  8. COUMADIN [Concomitant]
  9. MODURETIC 5-50 [Concomitant]

REACTIONS (6)
  - INAPPROPRIATE SCHEDULE OF DRUG ADMINISTRATION [None]
  - ANAEMIA [None]
  - RIB FRACTURE [None]
  - FALL [None]
  - GLYCOSYLATED HAEMOGLOBIN INCREASED [None]
  - THERAPEUTIC RESPONSE UNEXPECTED [None]
